FAERS Safety Report 17959589 (Version 12)
Quarter: 2022Q4

REPORT INFORMATION
  Report Type: Report from Study
  Country: JP (occurrence: JP)
  Receive Date: 20200629
  Receipt Date: 20221025
  Transmission Date: 20230113
  Serious: Yes (Hospitalization, Other)
  Sender: FDA-Public Use
  Company Number: JP-ONO-2019JP039627

PATIENT
  Age: 60 Year
  Sex: Female
  Weight: 52.5 kg

DRUGS (32)
  1. MEKTOVI [Suspect]
     Active Substance: BINIMETINIB
     Indication: Malignant melanoma
     Dosage: 90 MG, EVERYDAY
     Route: 048
     Dates: start: 20191127, end: 20191207
  2. MEKTOVI [Suspect]
     Active Substance: BINIMETINIB
     Dosage: 30 MG, Q12H
     Route: 048
     Dates: start: 20200107, end: 20200122
  3. MEKTOVI [Suspect]
     Active Substance: BINIMETINIB
     Dosage: 30 MG, Q12H
     Route: 048
     Dates: start: 20200205, end: 20200330
  4. MEKTOVI [Suspect]
     Active Substance: BINIMETINIB
     Dosage: 45 MG, Q12H
     Route: 048
     Dates: start: 20200331, end: 20200428
  5. MEKTOVI [Suspect]
     Active Substance: BINIMETINIB
     Dosage: 30 MG, Q12H
     Route: 048
     Dates: start: 20200503, end: 20200507
  6. MEKTOVI [Suspect]
     Active Substance: BINIMETINIB
     Dosage: 30 MG, Q12H
     Route: 048
     Dates: start: 20200511, end: 20201126
  7. BRAFTOVI [Suspect]
     Active Substance: ENCORAFENIB
     Indication: Malignant melanoma
     Dosage: 450 MG, EVERYDAY
     Route: 048
     Dates: start: 20191127, end: 20191207
  8. BRAFTOVI [Suspect]
     Active Substance: ENCORAFENIB
     Dosage: 300 MG, EVERYDAY
     Route: 048
     Dates: start: 20200107, end: 20200122
  9. BRAFTOVI [Suspect]
     Active Substance: ENCORAFENIB
     Dosage: 300 MG, EVERYDAY
     Route: 048
     Dates: start: 20200205, end: 20200330
  10. BRAFTOVI [Suspect]
     Active Substance: ENCORAFENIB
     Dosage: 450 MG, EVERYDAY
     Route: 048
     Dates: start: 20200331, end: 20200428
  11. BRAFTOVI [Suspect]
     Active Substance: ENCORAFENIB
     Dosage: 300 MG, EVERYDAY
     Route: 048
     Dates: start: 20200503, end: 20200507
  12. BRAFTOVI [Suspect]
     Active Substance: ENCORAFENIB
     Dosage: 300 MG, EVERYDAY
     Route: 048
     Dates: start: 20200511, end: 20201126
  13. OPDIVO [Suspect]
     Active Substance: NIVOLUMAB
     Indication: Malignant melanoma
     Dosage: 240 MG, Q2W
     Route: 041
     Dates: start: 20190618, end: 20190813
  14. DABRAFENIB MESYLATE [Suspect]
     Active Substance: DABRAFENIB MESYLATE
     Indication: Malignant melanoma
     Dosage: 300 MG, EVERYDAY
     Route: 065
     Dates: start: 20190820, end: 20190910
  15. DABRAFENIB MESYLATE [Suspect]
     Active Substance: DABRAFENIB MESYLATE
     Dosage: 200 MG, EVERYDAY
     Route: 065
     Dates: start: 20190917, end: 2019
  16. DABRAFENIB MESYLATE [Suspect]
     Active Substance: DABRAFENIB MESYLATE
     Dosage: UNK
     Route: 065
     Dates: end: 20191105
  17. TRAMETINIB DIMETHYL SULFOXIDE [Suspect]
     Active Substance: TRAMETINIB DIMETHYL SULFOXIDE
     Indication: Malignant melanoma
     Dosage: 2 MG, EVERYDAY
     Route: 065
     Dates: start: 20190820, end: 20190910
  18. TRAMETINIB DIMETHYL SULFOXIDE [Suspect]
     Active Substance: TRAMETINIB DIMETHYL SULFOXIDE
     Dosage: 1.5 MG, EVERYDAY
     Route: 065
     Dates: start: 20190917, end: 2019
  19. TRAMETINIB DIMETHYL SULFOXIDE [Suspect]
     Active Substance: TRAMETINIB DIMETHYL SULFOXIDE
     Dosage: UNK
     Route: 065
     Dates: end: 20191105
  20. PREDNISOLONE [Suspect]
     Active Substance: PREDNISOLONE
     Indication: Diarrhoea
     Dosage: 25 MG
     Route: 048
     Dates: start: 20190910, end: 20190916
  21. PREDNISOLONE [Suspect]
     Active Substance: PREDNISOLONE
     Indication: Pyrexia
     Dosage: 20 MG
     Route: 048
     Dates: start: 20190917, end: 20191216
  22. PREDNISOLONE [Suspect]
     Active Substance: PREDNISOLONE
     Indication: Rash
     Dosage: 15 MG
     Route: 048
     Dates: start: 20191217, end: 20200106
  23. PREDNISOLONE [Suspect]
     Active Substance: PREDNISOLONE
     Indication: Blood lactate dehydrogenase increased
     Dosage: 10 MG
     Route: 048
     Dates: start: 20200107, end: 20200119
  24. PREDNISOLONE [Suspect]
     Active Substance: PREDNISOLONE
     Dosage: 7.5 MG
     Route: 048
     Dates: start: 20200120, end: 202001
  25. PREDNISOLONE [Suspect]
     Active Substance: PREDNISOLONE
     Dosage: 5.0 MG
     Route: 048
     Dates: start: 202001
  26. VOGLIBOSE [Suspect]
     Active Substance: VOGLIBOSE
     Indication: Steroid diabetes
     Dosage: UNK
     Route: 048
  27. JANUVIA [Concomitant]
     Active Substance: SITAGLIPTIN PHOSPHATE
     Indication: Steroid diabetes
     Dosage: UNK
     Route: 048
  28. ALFACALCIDOL [Concomitant]
     Active Substance: ALFACALCIDOL
     Indication: Osteoporosis prophylaxis
     Dosage: UNK
     Route: 048
  29. FAMOTIDINE [Concomitant]
     Active Substance: FAMOTIDINE
     Indication: Gastritis prophylaxis
     Dosage: UNK
     Route: 048
  30. EDOXABAN TOSYLATE [Concomitant]
     Active Substance: EDOXABAN TOSYLATE
     Indication: Prophylaxis
     Dosage: UNK
     Route: 048
  31. LEVOTHYROXINE SODIUM [Concomitant]
     Active Substance: LEVOTHYROXINE SODIUM
     Indication: Thyroiditis
     Dosage: UNK
     Route: 048
  32. SULFAMETHOXAZOLE\TRIMETHOPRIM [Concomitant]
     Active Substance: SULFAMETHOXAZOLE\TRIMETHOPRIM
     Indication: Infection prophylaxis
     Dosage: UNK
     Route: 048

REACTIONS (17)
  - Disseminated intravascular coagulation [Recovering/Resolving]
  - Disease recurrence [Recovering/Resolving]
  - Macular detachment [Recovering/Resolving]
  - Rhabdomyolysis [Recovered/Resolved]
  - Uveitis [Unknown]
  - Vogt-Koyanagi-Harada disease [Unknown]
  - Flatulence [Recovered/Resolved]
  - Pyrexia [Recovered/Resolved]
  - Diarrhoea [Recovered/Resolved]
  - Renal impairment [Recovered/Resolved]
  - Rash [Recovered/Resolved]
  - Hepatic function abnormal [Recovered/Resolved]
  - Leukoderma [Not Recovered/Not Resolved]
  - Anaemia [Recovered/Resolved]
  - Blood lactate dehydrogenase increased [Recovered/Resolved]
  - Blood lactate dehydrogenase increased [Unknown]
  - Thyroid disorder [Recovered/Resolved]

NARRATIVE: CASE EVENT DATE: 20190910
